FAERS Safety Report 24599389 (Version 1)
Quarter: 2024Q4

REPORT INFORMATION
  Report Type: Spontaneous
  Country: US (occurrence: US)
  Receive Date: 20241110
  Receipt Date: 20241110
  Transmission Date: 20250115
  Serious: No
  Sender: SANOFI AVENTIS
  Company Number: US-SA-2024SA319584

PATIENT
  Age: 55 Year
  Sex: Female

DRUGS (10)
  1. DUPIXENT [Suspect]
     Active Substance: DUPILUMAB
     Indication: Dermatitis atopic
     Dosage: 300 MG, QOW
     Route: 058
  2. ALBUTEROL SULFATE [Concomitant]
     Active Substance: ALBUTEROL SULFATE
  3. AZELASTINE [Concomitant]
     Active Substance: AZELASTINE
  4. BUDESONIDE [Concomitant]
     Active Substance: BUDESONIDE
  5. CARVEDILOL [Concomitant]
     Active Substance: CARVEDILOL
  6. FLUTICASONE [Concomitant]
     Active Substance: FLUTICASONE
  7. LINZESS [Concomitant]
     Active Substance: LINACLOTIDE
  8. OZEMPIC [Concomitant]
     Active Substance: SEMAGLUTIDE
  9. QUETIAPINE FUMARATE [Concomitant]
     Active Substance: QUETIAPINE FUMARATE
  10. TACROLIMUS [Concomitant]
     Active Substance: TACROLIMUS

REACTIONS (1)
  - Pruritus [Not Recovered/Not Resolved]
